FAERS Safety Report 9667848 (Version 4)
Quarter: 2021Q4

REPORT INFORMATION
  Report Type: Report from Study
  Country: MX (occurrence: MX)
  Receive Date: 20131104
  Receipt Date: 20211020
  Transmission Date: 20220303
  Serious: Yes (Other)
  Sender: FDA-Public Use
  Company Number: PHHY2013MX124736

PATIENT
  Sex: Male
  Weight: 75 kg

DRUGS (9)
  1. EXFORGE [Suspect]
     Active Substance: AMLODIPINE BESYLATE\VALSARTAN
     Indication: Hypertension
     Dosage: 1 DF, (5/160MG) IN THE NIGHT, STARTED 7 YEARS AGO
     Route: 048
  2. EXFORGE [Suspect]
     Active Substance: AMLODIPINE BESYLATE\VALSARTAN
     Indication: Cardiac disorder
     Dosage: 0.5 DF, QD (? OF 5/160)
     Route: 048
     Dates: start: 2018
  3. EXFORGE [Suspect]
     Active Substance: AMLODIPINE BESYLATE\VALSARTAN
     Dosage: 1 DF, QD (5/160MG)
     Route: 048
     Dates: end: 2018
  4. EXFORGE [Suspect]
     Active Substance: AMLODIPINE BESYLATE\VALSARTAN
     Dosage: 0.5 DF, QD (OF 5/160 MG)
     Route: 048
     Dates: start: 2018
  5. METFORMIN HYDROCHLORIDE\VILDAGLIPTIN [Suspect]
     Active Substance: METFORMIN HYDROCHLORIDE\VILDAGLIPTIN
     Indication: Blood glucose
     Dosage: 1 DF, BID (50/850MG), STARTED APPROXIMATELY 7 YEARS AGO
     Route: 048
     Dates: end: 2017
  6. METFORMIN HYDROCHLORIDE\VILDAGLIPTIN [Suspect]
     Active Substance: METFORMIN HYDROCHLORIDE\VILDAGLIPTIN
     Indication: Diabetes mellitus
     Dosage: 2 DF, BID (50/850MG)
     Route: 048
     Dates: start: 2017
  7. METFORMIN HYDROCHLORIDE\VILDAGLIPTIN [Suspect]
     Active Substance: METFORMIN HYDROCHLORIDE\VILDAGLIPTIN
     Dosage: 2 DF, BID (50/850MG) (IN THE MORNING AND AT NIGHT)
     Route: 048
     Dates: start: 2019
  8. BISOPROLOL FUMARATE\HYDROCHLOROTHIAZIDE [Concomitant]
     Active Substance: BISOPROLOL FUMARATE\HYDROCHLOROTHIAZIDE
     Indication: Collateral circulation
     Dosage: 1 DF (5 MG EVERY MORNING) 12 YEARS AGO
     Route: 048
  9. ASPIRIN\CLOPIDOGREL BISULFATE [Concomitant]
     Active Substance: ASPIRIN\CLOPIDOGREL BISULFATE
     Indication: Collateral circulation
     Dosage: 1 DF, QHS (35/100 MG) 12 YEARS AGO
     Route: 048

REACTIONS (10)
  - Diabetes mellitus inadequate control [Recovered/Resolved]
  - Infarction [Not Recovered/Not Resolved]
  - Cerebral infarction [Unknown]
  - Blood pressure decreased [Recovered/Resolved]
  - Drug ineffective [Recovered/Resolved]
  - Speech disorder [Not Recovered/Not Resolved]
  - Balance disorder [Not Recovered/Not Resolved]
  - Product use in unapproved indication [Unknown]
  - Incorrect dose administered [Unknown]
  - Off label use [Unknown]

NARRATIVE: CASE EVENT DATE: 20110101
